FAERS Safety Report 11216372 (Version 1)
Quarter: 2015Q2

REPORT INFORMATION
  Report Type: Spontaneous
  Country: US (occurrence: None)
  Receive Date: 20150623
  Receipt Date: 20150623
  Transmission Date: 20150821
  Serious: Yes (Disabling)
  Sender: FDA-Public Use
  Company Number: None

PATIENT
  Age: 61 Year
  Sex: Male
  Weight: 63.5 kg

DRUGS (5)
  1. OMEPRAZOLE 40 MG [Suspect]
     Active Substance: OMEPRAZOLE
     Indication: PAIN IN EXTREMITY
     Dosage: 1 TABLET IN THE MORNING TAKEN UNDER THE TONGUE
     Route: 060
     Dates: start: 20150603, end: 20150607
  2. OMEPRAZOLE 40 MG [Suspect]
     Active Substance: OMEPRAZOLE
     Indication: ABASIA
     Dosage: 1 TABLET IN THE MORNING TAKEN UNDER THE TONGUE
     Route: 060
     Dates: start: 20150603, end: 20150607
  3. ZOCOR [Concomitant]
     Active Substance: SIMVASTATIN
  4. NORVASAC [Concomitant]
  5. COQ10 [Concomitant]
     Active Substance: UBIDECARENONE

REACTIONS (2)
  - Pain in extremity [None]
  - Abasia [None]

NARRATIVE: CASE EVENT DATE: 20150604
